FAERS Safety Report 6184719-0 (Version None)
Quarter: 2009Q2

REPORT INFORMATION
  Report Type: 
  Country: None (occurrence: None)
  Receive Date: 20090508
  Receipt Date: 20090428
  Transmission Date: 20091009
  Serious: Yes (Hospitalization)
  Sender: FDA-Public Use
  Company Number: DE-PFIZER INC-2009172315

PATIENT
  Age: 49 Year

DRUGS (1)
  1. LYRICA [Suspect]
     Indication: DIABETIC NEUROPATHY
     Dosage: 150 MG, 2X/DAY
     Route: 048
     Dates: end: 20090118

REACTIONS (4)
  - BLOOD CREATININE INCREASED [None]
  - DYSPNOEA [None]
  - MYOCLONUS [None]
  - OEDEMA PERIPHERAL [None]
